FAERS Safety Report 23691901 (Version 2)
Quarter: 2024Q2

REPORT INFORMATION
  Report Type: Spontaneous
  Country: CN (occurrence: CN)
  Receive Date: 20240401
  Receipt Date: 20240419
  Transmission Date: 20240716
  Serious: Yes (Other)
  Sender: FDA-Public Use
  Company Number: CN-MLMSERVICE-20240314-4884068-1

PATIENT
  Age: 53 Year
  Sex: Female

DRUGS (6)
  1. GEMCITABINE [Suspect]
     Active Substance: GEMCITABINE
     Indication: Metastases to liver
     Dosage: RECEIVED TWO CYCLES OF THERAPY
     Dates: start: 202110, end: 2021
  2. PACLITAXEL [Suspect]
     Active Substance: PACLITAXEL
     Indication: Ductal adenocarcinoma of pancreas
     Dosage: RECEIVED TWO CYCLES OF THERAPY
     Dates: start: 202110, end: 2021
  3. TISLELIZUMAB [Suspect]
     Active Substance: TISLELIZUMAB
     Indication: Metastases to liver
     Dosage: RECEIVED TWO CYCLES OF THERAPY
     Dates: start: 202110, end: 2021
  4. TISLELIZUMAB [Suspect]
     Active Substance: TISLELIZUMAB
     Indication: Pancreatic carcinoma metastatic
     Dosage: RECEIVED TWO CYCLES OF THERAPY
     Dates: start: 202110, end: 2021
  5. GEMCITABINE [Suspect]
     Active Substance: GEMCITABINE
     Indication: Ductal adenocarcinoma of pancreas
     Dosage: RECEIVED TWO CYCLES OF THERAPY
     Dates: start: 202110, end: 2021
  6. PACLITAXEL [Suspect]
     Active Substance: PACLITAXEL
     Indication: Pancreatic carcinoma metastatic
     Dosage: RECEIVED TWO CYCLES OF THERAPY
     Dates: start: 202110, end: 2021

REACTIONS (2)
  - Drug hypersensitivity [Unknown]
  - Rash pruritic [Unknown]

NARRATIVE: CASE EVENT DATE: 20210101
